FAERS Safety Report 4551917-9 (Version None)
Quarter: 2004Q4

REPORT INFORMATION
  Report Type: 
  Country: None (occurrence: None)
  Receive Date: 20041217
  Receipt Date: 20040824
  Transmission Date: 20050328
  Serious: No
  Sender: FDA-Public Use
  Company Number: 2004-BP-07166BP

PATIENT
  Age: 74 Year
  Sex: Female

DRUGS (11)
  1. SPIRIVA [Suspect]
     Indication: CHRONIC OBSTRUCTIVE AIRWAYS DISEASE
     Dosage: 18 MCG, (18 MCG, 18 MCG), IH
     Route: 055
     Dates: start: 20040603, end: 20040825
  2. CARDIZEM [Concomitant]
  3. PREDNISONE [Concomitant]
  4. NEXIUM [Concomitant]
  5. PAXIL [Concomitant]
  6. DIGOXIN [Concomitant]
  7. WARFARIN (WARFARIN) [Concomitant]
  8. CALCIUM (CALCIUM) [Concomitant]
  9. HUMIBID (GUAIFENESIN) [Concomitant]
  10. MICARDIS [Concomitant]
  11. FLOVENT [Concomitant]

REACTIONS (3)
  - CHEST DISCOMFORT [None]
  - LACRIMATION INCREASED [None]
  - VISION BLURRED [None]
